FAERS Safety Report 7680904-7 (Version None)
Quarter: 2011Q3

REPORT INFORMATION
  Report Type: 
  Country: None (occurrence: None)
  Receive Date: 20110812
  Receipt Date: 20110802
  Transmission Date: 20111222
  Serious: Yes (Other)
  Sender: FDA-Public Use
  Company Number: JP-JNJFOC-20080805016

PATIENT
  Sex: Male
  Weight: 63 kg

DRUGS (14)
  1. BETAMETHASONE [Concomitant]
     Dosage: DOSE 20 MG/DAY AS NEEDED
     Dates: start: 20071015, end: 20071019
  2. REMICADE [Suspect]
     Route: 042
     Dates: start: 20071227
  3. KENACORT-A OPHTHALMIC OINTMENT [Concomitant]
     Indication: BEHCET'S SYNDROME
     Dates: start: 20070720
  4. KENACORT-A OPHTHALMIC OINTMENT [Concomitant]
     Dates: start: 20070921
  5. BETAMETHASONE [Concomitant]
     Indication: BEHCET'S SYNDROME
     Dosage: DOSE 20MG/DAY AS NEEDED
     Dates: start: 20070817
  6. BETAMETHASONE [Concomitant]
     Dosage: DOSE 20MG/DAY AS NEEDED
     Dates: start: 20071109, end: 20071116
  7. RHEUMATREX [Concomitant]
     Indication: BEHCET'S SYNDROME
     Route: 048
     Dates: start: 20071108
  8. KENACORT-A OPHTHALMIC OINTMENT [Concomitant]
     Dates: end: 20080506
  9. REMICADE [Suspect]
     Route: 042
     Dates: start: 20071108
  10. REMICADE [Suspect]
     Route: 042
     Dates: start: 20080425
  11. KENACORT-A OPHTHALMIC OINTMENT [Concomitant]
     Dates: start: 20070517
  12. KENACORT-A OPHTHALMIC OINTMENT [Concomitant]
     Dosage: DOSE 20MG/DAY AS NEEDED
     Dates: start: 20070514
  13. REMICADE [Suspect]
     Route: 042
     Dates: start: 20071122
  14. REMICADE [Suspect]
     Indication: BEHCET'S SYNDROME
     Route: 042
     Dates: start: 20080221

REACTIONS (1)
  - MACULOPATHY [None]
